FAERS Safety Report 15591433 (Version 1)
Quarter: 2018Q4

REPORT INFORMATION
  Report Type: Spontaneous
  Country: US (occurrence: US)
  Receive Date: 20181101
  Receipt Date: 20181101
  Transmission Date: 20190205
  Serious: Yes (Hospitalization)
  Sender: FDA-Public Use
  Company Number: None

PATIENT
  Age: 63 Year
  Sex: Female

DRUGS (4)
  1. MULTI VITAMIN [Concomitant]
     Active Substance: VITAMINS
  2. ENBREL [Suspect]
     Active Substance: ETANERCEPT
     Indication: RHEUMATOID ARTHRITIS
     Route: 058
     Dates: start: 201804
  3. PREDNISONE. [Concomitant]
     Active Substance: PREDNISONE
  4. MOTRIN [Concomitant]
     Active Substance: IBUPROFEN

REACTIONS (2)
  - Intentional dose omission [None]
  - Knee operation [None]

NARRATIVE: CASE EVENT DATE: 201810
